FAERS Safety Report 5622299-6 (Version None)
Quarter: 2008Q1

REPORT INFORMATION
  Report Type: 
  Country: None (occurrence: None)
  Receive Date: 20080114
  Receipt Date: 20071015
  Transmission Date: 20080703
  Serious: Yes (Hospitalization)
  Sender: FDA-Public Use
  Company Number: A03200706001

PATIENT
  Age: 82 Year
  Sex: Female

DRUGS (3)
  1. PLAVIX [Suspect]
     Indication: STENT PLACEMENT
     Dosage: 75 MG QD - ORAL
     Route: 048
     Dates: start: 20070401
  2. LIPITOR [Suspect]
  3. ASPIRIN [Suspect]

REACTIONS (2)
  - ANAPHYLACTIC REACTION [None]
  - PARAESTHESIA ORAL [None]
